FAERS Safety Report 16721849 (Version 1)
Quarter: 2019Q3

REPORT INFORMATION
  Report Type: Spontaneous
  Country: DE (occurrence: DE)
  Receive Date: 20190820
  Receipt Date: 20190820
  Transmission Date: 20191005
  Serious: Yes (Hospitalization)
  Sender: FDA-Public Use
  Company Number: DE-TEVA-2019-DE-1093194

PATIENT
  Age: 74 Year
  Sex: Female
  Weight: 75 kg

DRUGS (13)
  1. TORASEMIDE [Suspect]
     Active Substance: TORSEMIDE
     Dosage: 10 MG, 1-0-0-0, TABLET
     Route: 048
  2. NEBIVOLOL GLENMARK 5MG [Concomitant]
     Dosage: 5 MG, 0.5-0-0-0, TABLET
     Route: 048
  3. ATORVASTATIN [Concomitant]
     Active Substance: ATORVASTATIN
     Dosage: 60 MG, 0-0-1-0, TABLET
     Route: 048
  4. VIGANTOLETTEN 1000I.E. [Concomitant]
     Active Substance: CHOLECALCIFEROL
     Dosage: 1000 IE, 0-1-0-0, TABLETTEN
     Route: 048
  5. THYRONAJOD 50 HENNING [Concomitant]
     Dosage: 50|196.2 MICROGRAM, 1-0-0-0, TABLET
     Route: 048
  6. ACETYLSALICYLSAEURE [Concomitant]
     Active Substance: ASPIRIN
     Dosage: 100 MG, 1-0-0-0, TABLET
     Route: 048
  7. EZETIMIB [Concomitant]
     Active Substance: EZETIMIBE
     Dosage: 10 MG, 0-0-1-0, TABLET
     Route: 048
  8. NORSPAN 5MIKROGRAMM/H [Concomitant]
     Dosage: 5 MICROGRAMS, 1X/WEEK, TRANSDERMAL PLASTER
     Route: 062
  9. PREDNISOLON [Concomitant]
     Active Substance: PREDNISOLONE
     Dosage: 10 MG, 0.5-0-0-0, TABLET
     Route: 048
  10. VALSARTAN. [Concomitant]
     Active Substance: VALSARTAN
     Dosage: 80 MG, 1-0-1-0, TABLET
     Route: 048
  11. VIANI 50/250MICROGRAM DISKUS [Concomitant]
     Dosage: 50|250 MICROGRAMS, 1-0-0-0, DOSING AEROSOL
     Route: 055
  12. PANTOPRAZOL [Concomitant]
     Active Substance: PANTOPRAZOLE SODIUM
     Dosage: 20 MG, 1-0-0-0, TABLET
     Route: 048
  13. METAMIZOL [Concomitant]
     Active Substance: METAMIZOLE SODIUM
     Dosage: 500 MG, DEMAND, TABLET
     Route: 048

REACTIONS (4)
  - Product monitoring error [Unknown]
  - Musculoskeletal pain [Unknown]
  - Fall [Unknown]
  - Electrolyte imbalance [Unknown]
